FAERS Safety Report 9270734 (Version 3)
Quarter: 2013Q2

REPORT INFORMATION
  Report Type: Report from Study
  Country: CA (occurrence: CA)
  Receive Date: 20130506
  Receipt Date: 20130610
  Transmission Date: 20140414
  Serious: Yes (Hospitalization, Other)
  Sender: FDA-Public Use
  Company Number: CA-ROCHE-1199655

PATIENT
  Age: 52 Year
  Sex: Male
  Weight: 110 kg

DRUGS (11)
  1. ACTEMRA [Suspect]
     Indication: RHEUMATOID ARTHRITIS
     Route: 042
     Dates: start: 20130201, end: 20130430
  2. ACTEMRA [Suspect]
     Dosage: THERAPY START DATE: 30/APR/2013
     Route: 065
  3. ACTEMRA [Suspect]
     Route: 042
     Dates: start: 20130318
  4. BISOPROLOL [Concomitant]
     Route: 065
  5. HYDROMORPH CONTIN [Concomitant]
     Route: 065
  6. CRESTOR [Concomitant]
     Route: 065
  7. FOLIC ACID [Concomitant]
  8. CYMBALTA [Concomitant]
     Route: 065
  9. ASA [Concomitant]
     Route: 065
  10. PREDNISONE [Concomitant]
     Route: 065
  11. METHOTREXATE [Concomitant]
     Route: 058

REACTIONS (5)
  - Diverticulum [Recovering/Resolving]
  - Dehydration [Recovering/Resolving]
  - Influenza [Unknown]
  - Malaise [Unknown]
  - Malaise [Unknown]
